FAERS Safety Report 6183408-6 (Version None)
Quarter: 2009Q2

REPORT INFORMATION
  Report Type: 
  Country: None (occurrence: None)
  Receive Date: 20090507
  Receipt Date: 20090428
  Transmission Date: 20091009
  Serious: Yes (Death)
  Sender: FDA-Public Use
  Company Number: GB-MERCK-0904GBR00108

PATIENT
  Age: 79 Year
  Sex: Female

DRUGS (13)
  1. ZOCOR [Suspect]
     Indication: MYOCARDIAL ISCHAEMIA
     Route: 048
     Dates: start: 20050501, end: 20090113
  2. CLARITHROMYCIN [Suspect]
     Indication: BRONCHITIS
     Route: 048
     Dates: start: 20081224, end: 20081231
  3. BISOPROLOL [Concomitant]
     Indication: MYOCARDIAL ISCHAEMIA
     Route: 065
  4. FERROUS SULFATE [Concomitant]
     Indication: ANAEMIA
     Route: 065
  5. FUROSEMIDE [Concomitant]
     Route: 065
  6. ISOSORBIDE MONONITRATE [Concomitant]
     Route: 065
  7. NICORANDIL [Concomitant]
     Route: 065
  8. OMEPRAZOLE [Concomitant]
     Indication: DYSPEPSIA
     Route: 065
  9. WARFARIN [Concomitant]
     Indication: ATRIAL FIBRILLATION
     Route: 065
     Dates: start: 20080701
  10. WARFARIN [Concomitant]
     Route: 065
  11. ZOPICLONE [Concomitant]
     Route: 065
  12. RAMIPRIL [Concomitant]
     Indication: MYOCARDIAL ISCHAEMIA
     Route: 065
  13. NITROGLYCERIN [Concomitant]
     Route: 065

REACTIONS (5)
  - BLOOD CREATINE PHOSPHOKINASE INCREASED [None]
  - CEREBROVASCULAR ACCIDENT [None]
  - DRUG INTERACTION [None]
  - MYOSITIS [None]
  - SYNCOPE [None]
